FAERS Safety Report 22136055 (Version 1)
Quarter: 2023Q1

REPORT INFORMATION
  Report Type: Spontaneous
  Country: NL (occurrence: NL)
  Receive Date: 20230324
  Receipt Date: 20230324
  Transmission Date: 20230418
  Serious: Yes (Hospitalization)
  Sender: FDA-Public Use
  Company Number: None

PATIENT
  Sex: Male
  Weight: 80 kg

DRUGS (2)
  1. DOXYCYCLINE [Suspect]
     Active Substance: DOXYCYCLINE
     Indication: Infection
     Dosage: THE FIRST DAY 200MG, THEN 100MG/DAY, DOXYCYCLINE DISPERTABLET 100MG / BRAND NAME NOT SPECIFIED
     Route: 065
     Dates: start: 20230101, end: 20230101
  2. IMURAN [Concomitant]
     Active Substance: AZATHIOPRINE
     Indication: Product used for unknown indication
     Dosage: 50 MG (MILLIGRAM), AZATHIOPRINE TABLET  50MG / IMURAN TABLET 50MG
     Route: 065

REACTIONS (1)
  - Pancreatitis [Recovered/Resolved]
